FAERS Safety Report 4801764-5 (Version None)
Quarter: 2005Q4

REPORT INFORMATION
  Report Type: 
  Country: None (occurrence: None)
  Receive Date: 20051018
  Receipt Date: 20051010
  Transmission Date: 20060501
  Serious: Yes (Hospitalization)
  Sender: FDA-Public Use
  Company Number: FR-JNJFOC-20051002036

PATIENT
  Age: 91 Year
  Sex: Male

DRUGS (6)
  1. HALDOL [Suspect]
     Indication: SENILE DEMENTIA
     Dosage: 0.5MG/ML
     Route: 048
  2. ROCEPHIN [Suspect]
     Indication: GENERAL PHYSICAL CONDITION
     Route: 030
     Dates: start: 20050823, end: 20050826
  3. ROCEPHIN [Suspect]
     Route: 030
     Dates: start: 20050823, end: 20050826
  4. ROCEPHIN [Suspect]
     Indication: UPPER RESPIRATORY TRACT INFECTION
     Route: 030
     Dates: start: 20050823, end: 20050826
  5. BIONOLYTE [Concomitant]
     Route: 042
  6. CYANOCOBOLAMINE [Concomitant]

REACTIONS (1)
  - TOXIC SKIN ERUPTION [None]
